FAERS Safety Report 8013449-5 (Version None)
Quarter: 2011Q4

REPORT INFORMATION
  Report Type: 
  Country: None (occurrence: None)
  Receive Date: 20111229
  Receipt Date: 20111222
  Transmission Date: 20120403
  Serious: Yes (Other)
  Sender: FDA-Public Use
  Company Number: BR-PFIZER INC-2011312392

PATIENT
  Sex: Male

DRUGS (1)
  1. IBUPROFEN [Suspect]
     Dosage: UNK
     Route: 065

REACTIONS (3)
  - SWELLING [None]
  - EYE DISORDER [None]
  - HYPERSENSITIVITY [None]
